FAERS Safety Report 12717499 (Version 1)
Quarter: 2016Q3

REPORT INFORMATION
  Report Type: Spontaneous
  Country: US (occurrence: US)
  Receive Date: 20160906
  Receipt Date: 20160906
  Transmission Date: 20161109
  Serious: No
  Sender: FDA-Public Use
  Company Number: US-AMNEAL PHARMACEUTICALS-2015AMN00162

PATIENT
  Sex: Female
  Weight: 77.98 kg

DRUGS (8)
  1. HYDROCORDONE ACETAMIOPHEN [Concomitant]
     Indication: PAIN
     Dosage: 1 TABLET EVERY 6-8 HOURS
     Route: 048
  2. BACLOFEN. [Concomitant]
     Active Substance: BACLOFEN
     Indication: MUSCLE SPASMS
     Dosage: 5MG, ONE TIME A DAY AT BEDTIME
  3. NOVOLOG SUBCUTANEOUS INJECTION [Concomitant]
     Indication: DIABETES MELLITUS
     Dosage: 30 UNITS WITH MEALS
  4. VITAMIN D [Concomitant]
     Active Substance: CHOLECALCIFEROL
     Indication: HYPOVITAMINOSIS
     Dosage: 1 CAPSULES, 1X/WEEK
  5. GABAPENTIN. [Suspect]
     Active Substance: GABAPENTIN
     Indication: NEUROPATHY PERIPHERAL
     Dosage: 3 CAPSULES, 3X/DAY
     Dates: start: 201501, end: 201510
  6. LYRICA [Concomitant]
     Active Substance: PREGABALIN
     Indication: NEUROPATHY PERIPHERAL
     Dosage: 1 CAP TWICE A DAY
     Route: 048
     Dates: start: 201501, end: 20151013
  7. LEVEMIR INJECTION [Concomitant]
     Indication: DIABETES MELLITUS
     Dosage: 28 UNITS SUBCUTANEOUS NIGHTLY
  8. SYNTHROID [Concomitant]
     Active Substance: LEVOTHYROXINE SODIUM
     Dosage: 1 TAB DAILY

REACTIONS (5)
  - Dysgeusia [Recovered/Resolved]
  - Hypertension [Unknown]
  - Back pain [Unknown]
  - Condition aggravated [Recovered/Resolved]
  - Drug ineffective [Not Recovered/Not Resolved]

NARRATIVE: CASE EVENT DATE: 2015
